FAERS Safety Report 7202607-5 (Version None)
Quarter: 2010Q4

REPORT INFORMATION
  Report Type: 
  Country: None (occurrence: None)
  Receive Date: 20101229
  Receipt Date: 20101221
  Transmission Date: 20110411
  Serious: Yes (Hospitalization, Other)
  Sender: FDA-Public Use
  Company Number: US-GENZYME-MOZO-1000452

PATIENT
  Sex: Female
  Weight: 59.5 kg

DRUGS (15)
  1. MOZOBIL [Suspect]
     Indication: ACUTE MYELOID LEUKAEMIA
     Dosage: 14616 MCG, QOD
     Route: 058
     Dates: start: 20101214, end: 20101214
  2. FILGRASTIM [Concomitant]
     Indication: PRODUCT USED FOR UNKNOWN INDICATION
     Dosage: 600 MCG, QOD
     Route: 058
     Dates: start: 20101214
  3. NEUPOGEN [Concomitant]
     Indication: ACUTE MYELOID LEUKAEMIA
     Dosage: UNK
     Dates: start: 20101214
  4. SORAFENIB [Concomitant]
     Indication: ACUTE MYELOID LEUKAEMIA
     Dosage: 400 MG, BID
     Route: 048
     Dates: start: 20101214
  5. VICODIN [Concomitant]
     Indication: PAIN
     Dosage: UNK
     Route: 048
  6. ATIVAN [Concomitant]
     Indication: NAUSEA
     Dosage: 0.5 MG, PRN
     Route: 048
  7. ATIVAN [Concomitant]
     Indication: VOMITING
  8. COLACE [Concomitant]
     Indication: PRODUCT USED FOR UNKNOWN INDICATION
     Dosage: 100 MG, QD
     Route: 048
  9. COMPAZINE [Concomitant]
     Indication: NAUSEA
     Dosage: 10 MG, PRN
     Route: 048
  10. COMPAZINE [Concomitant]
     Indication: VOMITING
  11. POTASSIUM CHLORIDE [Concomitant]
     Indication: PRODUCT USED FOR UNKNOWN INDICATION
     Dosage: 10 MEQ, BID
     Route: 048
  12. PROTONIX [Concomitant]
     Indication: PRODUCT USED FOR UNKNOWN INDICATION
     Dosage: 40 MG, BID
     Route: 048
  13. VALTREX [Concomitant]
     Indication: PRODUCT USED FOR UNKNOWN INDICATION
     Dosage: 500 MG, QD
     Route: 048
  14. ZOFRAN [Concomitant]
     Indication: NAUSEA
     Dosage: 8 MG, PRN
     Route: 048
  15. ZOFRAN [Concomitant]
     Indication: VOMITING

REACTIONS (5)
  - ABDOMINAL DISCOMFORT [None]
  - FEBRILE NEUTROPENIA [None]
  - HIATUS HERNIA [None]
  - NAUSEA [None]
  - VOMITING [None]
